FAERS Safety Report 21160499 (Version 1)
Quarter: 2022Q3

REPORT INFORMATION
  Report Type: Spontaneous
  Country: US (occurrence: None)
  Receive Date: 20220801
  Receipt Date: 20220801
  Transmission Date: 20221027
  Serious: No
  Sender: FDA-Public Use
  Company Number: None

PATIENT
  Age: 68 Year
  Sex: Female
  Weight: 94.5 kg

DRUGS (6)
  1. ASENAPINE [Suspect]
     Active Substance: ASENAPINE
     Indication: Major depression
     Dosage: FREQUENCY : DAILY;?
     Route: 060
     Dates: start: 20220731
  2. ASENAPINE [Suspect]
     Active Substance: ASENAPINE
     Indication: Obsessive-compulsive disorder
  3. DESIPRAMINE [Concomitant]
     Active Substance: DESIPRAMINE
     Dates: start: 20220523
  4. ALPRAZOLAM [Concomitant]
     Active Substance: ALPRAZOLAM
     Dates: start: 20051101
  5. STELAZINE [Concomitant]
     Active Substance: TRIFLUOPERAZINE HYDROCHLORIDE
     Dates: start: 20011101
  6. MIRTAZAPINE [Concomitant]
     Active Substance: MIRTAZAPINE
     Dates: start: 20220516

REACTIONS (5)
  - Product solubility abnormal [None]
  - Product solubility abnormal [None]
  - Product physical issue [None]
  - Product substitution issue [None]
  - Product formulation issue [None]

NARRATIVE: CASE EVENT DATE: 20220731
